FAERS Safety Report 24044451 (Version 1)
Quarter: 2024Q3

REPORT INFORMATION
  Report Type: Spontaneous
  Country: US (occurrence: US)
  Receive Date: 20240703
  Receipt Date: 20240703
  Transmission Date: 20241016
  Serious: No
  Sender: GILEAD
  Company Number: US-GILEAD-2024-0679102

PATIENT
  Age: 60 Year
  Sex: Female

DRUGS (1)
  1. TRODELVY [Suspect]
     Active Substance: SACITUZUMAB GOVITECAN-HZIY
     Indication: Transitional cell carcinoma metastatic
     Dosage: FIRST CYCLE
     Route: 065

REACTIONS (1)
  - Mucosal inflammation [Recovered/Resolved]
